FAERS Safety Report 7808879-8 (Version None)
Quarter: 2011Q4

REPORT INFORMATION
  Report Type: 
  Country: None (occurrence: None)
  Receive Date: 20111012
  Receipt Date: 20111005
  Transmission Date: 20120403
  Serious: Yes (Other)
  Sender: FDA-Public Use
  Company Number: PHHY2011DE61285

PATIENT
  Age: 65 Year
  Sex: Male

DRUGS (5)
  1. FRAXIPARIN [Concomitant]
     Dosage: UNK UKN, UNK
  2. RASILEZ [Suspect]
     Indication: HYPERTENSION
     Dosage: 150 MG, QD
     Route: 048
     Dates: start: 20110702, end: 20110705
  3. METOPROLOL TARTRATE [Concomitant]
     Indication: HYPERTENSION
     Dosage: HIGH DOSE
     Route: 048
  4. ALLOPURINOL [Concomitant]
     Dosage: UNK UKN, UNK
  5. AMLODIPINE [Concomitant]
     Indication: HYPERTENSION
     Dosage: UNK UKN, UNK
     Route: 048

REACTIONS (2)
  - BLOOD DISORDER [None]
  - THROMBOCYTOPENIA [None]
